FAERS Safety Report 21960692 (Version 1)
Quarter: 2023Q1

REPORT INFORMATION
  Report Type: Spontaneous
  Country: US (occurrence: US)
  Receive Date: 20230207
  Receipt Date: 20230207
  Transmission Date: 20230418
  Serious: Yes (Other)
  Sender: FDA-Public Use
  Company Number: US-MICRO LABS LIMITED-ML2023-00498

PATIENT
  Age: 74 Year
  Sex: Male
  Weight: 77.180 kg

DRUGS (2)
  1. DORZOLAMIDE\TIMOLOL [Suspect]
     Active Substance: DORZOLAMIDE\TIMOLOL
     Indication: Glaucoma
     Dosage: STRENGTH: 22.3MG/6.8MG?DOSE: ONE DROP IN EACH EYE ( 2 TIMES DAILY (MORNING AND NIGHT)
     Route: 047
     Dates: start: 2019, end: 20230123
  2. LUMIGAN [Concomitant]
     Active Substance: BIMATOPROST

REACTIONS (9)
  - Skin lesion [Unknown]
  - Eyelid operation [Unknown]
  - Acne [Recovered/Resolved]
  - Eyelid disorder [Recovered/Resolved]
  - Eye irritation [Recovered/Resolved]
  - Eye pruritus [Recovered/Resolved]
  - Eye swelling [Recovered/Resolved]
  - Vision blurred [Recovered/Resolved]
  - Hypersensitivity [Recovered/Resolved]

NARRATIVE: CASE EVENT DATE: 20221201
